FAERS Safety Report 20707790 (Version 3)
Quarter: 2022Q3

REPORT INFORMATION
  Report Type: Spontaneous
  Country: JP (occurrence: JP)
  Receive Date: 20220413
  Receipt Date: 20220624
  Transmission Date: 20221027
  Serious: Yes (Hospitalization)
  Sender: FDA-Public Use
  Company Number: JP-NOVARTISPH-NVSJ2021JP015199

PATIENT
  Age: 7 Decade
  Sex: Female

DRUGS (15)
  1. PROPOFOL [Suspect]
     Active Substance: PROPOFOL
     Indication: Sedation
     Dosage: 100 MG
     Route: 042
  2. PROPOFOL [Suspect]
     Active Substance: PROPOFOL
     Indication: Malignant catatonia
  3. BROMAZEPAM [Suspect]
     Active Substance: BROMAZEPAM
     Indication: Product used for unknown indication
     Dosage: 15 MG/DAY
     Route: 065
  4. QUETIAPINE [Suspect]
     Active Substance: QUETIAPINE
     Indication: Product used for unknown indication
     Dosage: 600 MG/DAY
     Route: 065
  5. BROTIZOLAM [Suspect]
     Active Substance: BROTIZOLAM
     Indication: Product used for unknown indication
     Dosage: 0.25 MG/DAY
     Route: 065
  6. FLUNITRAZEPAM [Suspect]
     Active Substance: FLUNITRAZEPAM
     Indication: Product used for unknown indication
     Dosage: 4 MG/DAY
     Route: 065
  7. FLUNITRAZEPAM [Suspect]
     Active Substance: FLUNITRAZEPAM
     Dosage: 5 MG/DAY
     Route: 065
  8. OLANZAPINE [Suspect]
     Active Substance: OLANZAPINE
     Indication: Product used for unknown indication
     Dosage: 20 MG/DAY
     Route: 065
  9. RHUBARB [Suspect]
     Active Substance: RHUBARB
     Indication: Laxative supportive care
     Dosage: 9 G/DAY
     Route: 065
  10. MAGNESIUM OXIDE [Suspect]
     Active Substance: MAGNESIUM OXIDE
     Indication: Product used for unknown indication
     Dosage: 9 G/DAY
     Route: 065
  11. REBAMIPIDE [Suspect]
     Active Substance: REBAMIPIDE
     Indication: Product used for unknown indication
     Dosage: 300 MG/DAY
     Route: 065
  12. DIAZEPAM [Suspect]
     Active Substance: DIAZEPAM
     Indication: Product used for unknown indication
     Dosage: 5 MG/DAY
     Route: 065
  13. DANTROLENE SODIUM [Suspect]
     Active Substance: DANTROLENE SODIUM
     Indication: Malignant catatonia
     Dosage: 40 MG, QD
     Route: 065
  14. DANTROLENE SODIUM [Suspect]
     Active Substance: DANTROLENE SODIUM
     Dosage: 60 MG, QD
     Route: 065
  15. DANTROLENE SODIUM [Suspect]
     Active Substance: DANTROLENE SODIUM
     Dosage: 100 MG, QD
     Route: 065

REACTIONS (5)
  - Bronchopulmonary aspergillosis [Recovered/Resolved]
  - Malignant catatonia [Recovered/Resolved]
  - Off label use [Unknown]
  - Drug effective for unapproved indication [Unknown]
  - Drug ineffective [Unknown]
